FAERS Safety Report 24595303 (Version 2)
Quarter: 2025Q3

REPORT INFORMATION
  Report Type: Report from Study
  Country: TW (occurrence: TW)
  Receive Date: 20241108
  Receipt Date: 20250803
  Transmission Date: 20251020
  Serious: Yes (Hospitalization, Other)
  Sender: ALEXION PHARMACEUTICALS
  Company Number: TW-AstraZeneca-CH-00732539A

PATIENT
  Age: 58 Year
  Sex: Male

DRUGS (1)
  1. DURVALUMAB [Suspect]
     Active Substance: DURVALUMAB
     Indication: Lung neoplasm malignant

REACTIONS (3)
  - Brain oedema [Unknown]
  - Altered state of consciousness [Unknown]
  - Hypokinesia [Unknown]

NARRATIVE: CASE EVENT DATE: 20241008
